FAERS Safety Report 8783988 (Version 1)
Quarter: 2012Q4

REPORT INFORMATION
  Report Type: Spontaneous
  Country: US (occurrence: None)
  Receive Date: 20120906
  Receipt Date: 20120906
  Transmission Date: 20130627
  Serious: Yes (Hospitalization)
  Sender: FDA-Public Use
  Company Number: None

PATIENT
  Weight: 102.1 kg

DRUGS (4)
  1. BEVACIZUMAB [Suspect]
  2. CARBOPLATIN [Suspect]
  3. CARBOPLATIN [Suspect]
  4. PACLITAXEL (TAXOL) [Suspect]

REACTIONS (4)
  - Respiratory failure [None]
  - Interstitial lung disease [None]
  - Pulmonary embolism [None]
  - Resuscitation [None]
